FAERS Safety Report 8456646-7 (Version None)
Quarter: 2012Q2

REPORT INFORMATION
  Report Type: 
  Country: None (occurrence: None)
  Receive Date: 20120621
  Receipt Date: 20120606
  Transmission Date: 20120825
  Serious: Yes (Life-Threatening)
  Sender: FDA-Public Use
  Company Number: US-COVIDIEN/TYCO HEALTHCARE/MALLINCKRODT-T201202586

PATIENT
  Age: 5 Day
  Sex: Female
  Weight: 3.34 kg

DRUGS (3)
  1. FENTANYL CITRATE [Suspect]
     Dosage: 3 ?G, SINGLE
     Route: 040
  2. FENTANYL CITRATE [Suspect]
     Dosage: 3 ?G, SINGLE
     Route: 040
  3. FENTANYL CITRATE [Suspect]
     Indication: ANALGESIC THERAPY
     Dosage: 3 ?G, SINGLE
     Route: 040

REACTIONS (4)
  - OXYGEN SATURATION DECREASED [None]
  - NEONATAL RESPIRATORY FAILURE [None]
  - CYANOSIS [None]
  - MUSCLE RIGIDITY [None]
